FAERS Safety Report 8354898-5 (Version None)
Quarter: 2012Q2

REPORT INFORMATION
  Report Type: 
  Country: None (occurrence: None)
  Receive Date: 20120511
  Receipt Date: 20120503
  Transmission Date: 20120825
  Serious: Yes (Hospitalization)
  Sender: FDA-Public Use
  Company Number: IT-PERRIGO-12IT003917

PATIENT
  Age: 44 Year
  Sex: Female
  Weight: 46 kg

DRUGS (5)
  1. LORMETAZEPAM [Suspect]
     Indication: PRODUCT USED FOR UNKNOWN INDICATION
     Dosage: 50 MG, QD
     Route: 065
  2. VALPROIC ACID [Concomitant]
     Indication: CONVULSION PROPHYLAXIS
     Dosage: 500 MG, BID
     Route: 065
  3. LORAZEPAM [Suspect]
     Indication: PRODUCT USED FOR UNKNOWN INDICATION
     Dosage: 2 MG, QD
     Route: 065
  4. FLUMAZENIL [Concomitant]
     Indication: DRUG DETOXIFICATION
     Dosage: 0.5MG OVER 14 HOURS
     Route: 042
  5. CLONAZEPAM [Concomitant]
     Indication: DRUG DETOXIFICATION
     Dosage: UNK
     Route: 065

REACTIONS (3)
  - AUTOMATISM [None]
  - DRUG WITHDRAWAL CONVULSIONS [None]
  - DEPRESSED LEVEL OF CONSCIOUSNESS [None]
